FAERS Safety Report 13769582 (Version 2)
Quarter: 2018Q3

REPORT INFORMATION
  Report Type: Spontaneous
  Country: US (occurrence: US)
  Receive Date: 20170719
  Receipt Date: 20180717
  Transmission Date: 20181010
  Serious: No
  Sender: FDA-Public Use
  Company Number: US-BAUSCH-BL-2017-003412

PATIENT
  Age: 70 Year
  Sex: Female
  Weight: 63.56 kg

DRUGS (4)
  1. XIFAXAN [Suspect]
     Active Substance: RIFAXIMIN
     Indication: AMMONIA INCREASED
     Route: 048
     Dates: start: 2014, end: 201612
  2. SPIRONOLACTONE. [Concomitant]
     Active Substance: SPIRONOLACTONE
     Indication: MYOCARDIAL INFARCTION
  3. GENERLAC [Concomitant]
     Active Substance: LACTULOSE
     Indication: CONSTIPATION
  4. XIFAXAN [Suspect]
     Active Substance: RIFAXIMIN
     Indication: COMA HEPATIC
     Route: 048

REACTIONS (7)
  - Influenza [Recovered/Resolved]
  - Treatment noncompliance [Unknown]
  - Amnesia [Recovered/Resolved]
  - Diarrhoea [Recovered/Resolved]
  - Feeling abnormal [Recovered/Resolved]
  - Ammonia increased [Recovered/Resolved]
  - Vomiting [Recovered/Resolved]

NARRATIVE: CASE EVENT DATE: 201612
